FAERS Safety Report 18958588 (Version 2)
Quarter: 2021Q1

REPORT INFORMATION
  Report Type: Report from Study
  Country: US (occurrence: US)
  Receive Date: 20210302
  Receipt Date: 20210331
  Transmission Date: 20210420
  Serious: Yes (Other)
  Sender: FDA-Public Use
  Company Number: US-B.I. PHARMACEUTICALS,INC./RIDGEFIELD-2020-MR-018962

PATIENT
  Age: 69 Year
  Sex: Male
  Weight: 79.37 kg

DRUGS (2)
  1. OFEV [Suspect]
     Active Substance: NINTEDANIB
  2. OFEV [Suspect]
     Active Substance: NINTEDANIB
     Indication: IDIOPATHIC PULMONARY FIBROSIS
     Route: 048
     Dates: start: 20200327

REACTIONS (14)
  - Muscle spasms [Not Recovered/Not Resolved]
  - Idiopathic pulmonary fibrosis [Not Recovered/Not Resolved]
  - Diarrhoea [Unknown]
  - Asthenia [Recovered/Resolved]
  - Weight decreased [Not Recovered/Not Resolved]
  - Blood pressure fluctuation [Unknown]
  - Faeces soft [Unknown]
  - Abdominal discomfort [Unknown]
  - Abdominal distension [Unknown]
  - Body temperature decreased [Not Recovered/Not Resolved]
  - Flatulence [Unknown]
  - Parosmia [Unknown]
  - Varicose vein [Unknown]
  - Blood pressure increased [Unknown]

NARRATIVE: CASE EVENT DATE: 202003
